FAERS Safety Report 7717938-X (Version None)
Quarter: 2011Q3

REPORT INFORMATION
  Report Type: 
  Country: None (occurrence: None)
  Receive Date: 20110830
  Receipt Date: 20110822
  Transmission Date: 20111222
  Serious: Yes (Other)
  Sender: FDA-Public Use
  Company Number: US-JNJFOC-20110504407

PATIENT
  Sex: Female
  Weight: 65.77 kg

DRUGS (3)
  1. DURAGESIC-100 [Suspect]
     Indication: ARTHRALGIA
     Route: 062
     Dates: start: 20010101, end: 20110301
  2. DURAGESIC-100 [Suspect]
     Route: 062
     Dates: start: 20010101, end: 20110301
  3. DURAGESIC-100 [Suspect]
     Indication: NECK PAIN
     Route: 062
     Dates: start: 20010101, end: 20110301

REACTIONS (2)
  - ARTHRALGIA [None]
  - TOOTH INFECTION [None]
